FAERS Safety Report 9181209 (Version 1)
Quarter: 2013Q1

REPORT INFORMATION
  Report Type: Spontaneous
  Country: US (occurrence: US)
  Receive Date: 20130322
  Receipt Date: 20130322
  Transmission Date: 20140127
  Serious: No
  Sender: FDA-Public Use
  Company Number: US-MYLANLABS-2012S1018913

PATIENT
  Age: 62 Year
  Sex: Female

DRUGS (5)
  1. EMSAM [Suspect]
     Indication: DEPRESSION
     Dosage: CHANGED Q24H
     Route: 062
     Dates: start: 201208, end: 20120904
  2. EMSAM [Interacting]
     Indication: DEPRESSION
     Dosage: CHANGED Q24H
     Route: 062
     Dates: start: 20120905
  3. ZYRTEC [Interacting]
     Indication: APPLICATION SITE PRURITUS
     Route: 048
     Dates: start: 201209
  4. ATACAND HCT [Concomitant]
     Indication: BLOOD PRESSURE INCREASED
     Dosage: 16/12.5MG
     Route: 048
  5. SYNTHROID [Concomitant]
     Indication: HYPOTHYROIDISM
     Route: 048

REACTIONS (4)
  - Drug effect decreased [Not Recovered/Not Resolved]
  - Depression [Not Recovered/Not Resolved]
  - Application site pruritus [Not Recovered/Not Resolved]
  - Drug interaction [Not Recovered/Not Resolved]
